FAERS Safety Report 7453921-X (Version None)
Quarter: 2011Q2

REPORT INFORMATION
  Report Type: 
  Country: None (occurrence: None)
  Receive Date: 20110502
  Receipt Date: 20110420
  Transmission Date: 20111010
  Serious: Yes (Other)
  Sender: FDA-Public Use
  Company Number: FR-BAYER-2011-034920

PATIENT
  Sex: Female

DRUGS (1)
  1. MOXIFLOXACIN HCL [Suspect]
     Indication: PRODUCT USED FOR UNKNOWN INDICATION
     Dosage: UNK
     Dates: start: 20100101, end: 20100101

REACTIONS (4)
  - PUPIL FIXED [None]
  - PHOTOPHOBIA [None]
  - CEREBROVASCULAR ACCIDENT [None]
  - OCULAR DISCOMFORT [None]
